FAERS Safety Report 17460518 (Version 2)
Quarter: 2020Q2

REPORT INFORMATION
  Report Type: Spontaneous
  Country: US (occurrence: US)
  Receive Date: 20200226
  Receipt Date: 20200427
  Transmission Date: 20200713
  Serious: Yes (Hospitalization, Other)
  Sender: FDA-Public Use
  Company Number: US-PFIZER INC-2020085426

PATIENT
  Age: 63 Year
  Sex: Female

DRUGS (5)
  1. CALCIUM [Concomitant]
     Active Substance: CALCIUM
     Dosage: UNK [500(1250)]
  2. XELJANZ [Suspect]
     Active Substance: TOFACITINIB CITRATE
     Indication: RHEUMATOID ARTHRITIS
     Dosage: 5 MG, 2X/DAY
     Route: 048
     Dates: start: 20200102
  3. EMERGEN-C [Concomitant]
     Active Substance: VITAMINS
     Dosage: 1000 MG, UNK
  4. ZINC. [Concomitant]
     Active Substance: ZINC
     Dosage: UNK
  5. MAGNESIUM [Concomitant]
     Active Substance: MAGNESIUM
     Dosage: UNK

REACTIONS (3)
  - Malaise [Recovering/Resolving]
  - Influenza [Unknown]
  - Pneumonia [Unknown]
